FAERS Safety Report 5124729-5 (Version None)
Quarter: 2006Q4

REPORT INFORMATION
  Report Type: 
  Country: None (occurrence: None)
  Receive Date: 20061011
  Receipt Date: 20061005
  Transmission Date: 20070319
  Serious: Yes (Disabling, Other)
  Sender: FDA-Public Use
  Company Number: IN-AVENTIS-200615102EU

PATIENT
  Age: 78 Year
  Sex: Female

DRUGS (2)
  1. ENOXAPARIN SODIUM [Suspect]
     Indication: SURGERY
     Route: 058
  2. ANALGESICS [Concomitant]

REACTIONS (10)
  - BACK PAIN [None]
  - CAUDA EQUINA SYNDROME [None]
  - DYSURIA [None]
  - EXTRADURAL HAEMATOMA [None]
  - GAIT DISTURBANCE [None]
  - GASTROINTESTINAL HAEMORRHAGE [None]
  - GENERAL PHYSICAL CONDITION ABNORMAL [None]
  - HYPOAESTHESIA [None]
  - OCCULT BLOOD POSITIVE [None]
  - PARAPLEGIA [None]
